FAERS Safety Report 7808709-4 (Version None)
Quarter: 2011Q4

REPORT INFORMATION
  Report Type: 
  Country: None (occurrence: None)
  Receive Date: 20111007
  Receipt Date: 20110928
  Transmission Date: 20120403
  Serious: Yes (Hospitalization, Other)
  Sender: FDA-Public Use
  Company Number: 2010US003696

PATIENT
  Sex: Male
  Weight: 110 kg

DRUGS (10)
  1. LISINOPRIL [Concomitant]
  2. CALCITRIOL [Concomitant]
  3. LASIX [Concomitant]
  4. ONDANSETRON [Concomitant]
  5. DOXAZOSIN MESYLATE [Concomitant]
  6. HUMULIN (INSULIN HUMAN) [Concomitant]
  7. PROGRAF [Suspect]
     Indication: LIVER TRANSPLANT
     Dosage: 0.5 MG, BID, ORAL; 1 MG /D, ORAL
     Route: 048
     Dates: start: 20020816
  8. ALBUTEROL [Concomitant]
  9. AMLODIPINE [Concomitant]
  10. LEVOTHYROXINE SODIUM [Concomitant]

REACTIONS (3)
  - CARDIAC DISORDER [None]
  - OVERDOSE [None]
  - RENAL FAILURE [None]
